FAERS Safety Report 12875518 (Version 3)
Quarter: 2017Q1

REPORT INFORMATION
  Report Type: Spontaneous
  Country: US (occurrence: US)
  Receive Date: 20161024
  Receipt Date: 20170125
  Transmission Date: 20170428
  Serious: No
  Sender: FDA-Public Use
  Company Number: US-009507513-1610USA008189

PATIENT
  Sex: Male

DRUGS (2)
  1. INTRON A [Suspect]
     Active Substance: INTERFERON ALFA-2B
     Indication: MALIGNANT MELANOMA
     Dosage: 1 ML (18 MU), TIW (3X5 WEEK)
     Route: 058
     Dates: start: 20160113, end: 20161120
  2. INTRON A [Suspect]
     Active Substance: INTERFERON ALFA-2B
     Dosage: 1 ML (18 MU), TIW (3X5 WEEK)
     Route: 058
     Dates: start: 2016

REACTIONS (4)
  - Headache [Unknown]
  - White blood cell count increased [Unknown]
  - Diarrhoea [Unknown]
  - Drug dose omission [Unknown]

NARRATIVE: CASE EVENT DATE: 2016
